FAERS Safety Report 5819401-X (Version None)
Quarter: 2008Q3

REPORT INFORMATION
  Report Type: 
  Country: None (occurrence: None)
  Receive Date: 20080723
  Receipt Date: 20080717
  Transmission Date: 20090109
  Serious: Yes (Death)
  Sender: FDA-Public Use
  Company Number: US-ALLERGAN-0808832US

PATIENT
  Age: 22 Year
  Sex: Male

DRUGS (1)
  1. BOTOX [Suspect]
     Indication: APTYALISM
     Dosage: 20 UNITS, SINGLE
     Route: 050
     Dates: start: 20080331, end: 20080331

REACTIONS (1)
  - APTYALISM [None]
